FAERS Safety Report 11942034 (Version 1)
Quarter: 2016Q1

REPORT INFORMATION
  Report Type: Spontaneous
  Country: US (occurrence: US)
  Receive Date: 20160124
  Receipt Date: 20160124
  Transmission Date: 20160526
  Serious: No
  Sender: FDA-Public Use
  Company Number: US-BIOGEN-2015BI00166521

PATIENT
  Sex: Female

DRUGS (1)
  1. TECFIDERA [Suspect]
     Active Substance: DIMETHYL FUMARATE
     Indication: MULTIPLE SCLEROSIS
     Dates: start: 20131217, end: 20151111

REACTIONS (4)
  - Drug ineffective [Unknown]
  - Vein disorder [Not Recovered/Not Resolved]
  - Contusion [Not Recovered/Not Resolved]
  - Procedural pain [Not Recovered/Not Resolved]
